FAERS Safety Report 15050185 (Version 3)
Quarter: 2021Q3

REPORT INFORMATION
  Report Type: Spontaneous
  Country: US (occurrence: US)
  Receive Date: 20180622
  Receipt Date: 20210922
  Transmission Date: 20211014
  Serious: Yes (Other)
  Sender: FDA-Public Use
  Company Number: US-ROCHE-2129915

PATIENT
  Age: 51 Year
  Sex: Female
  Weight: 74.46 kg

DRUGS (13)
  1. RITUXAN [Suspect]
     Active Substance: RITUXIMAB
     Indication: JUVENILE IDIOPATHIC ARTHRITIS
     Route: 065
     Dates: start: 20160614
  2. RITUXAN [Suspect]
     Active Substance: RITUXIMAB
     Indication: RHEUMATOID ARTHRITIS
     Dosage: 2 INFUSIONS SEPARATED BY 2 WEEKS EVERY 6 MONTHS
     Route: 042
     Dates: start: 201611
  3. VIVELLE [Concomitant]
     Active Substance: ESTRADIOL
     Indication: HYSTERECTOMY
     Route: 062
  4. PREDNISONE. [Concomitant]
     Active Substance: PREDNISONE
  5. OXYCODONE [Concomitant]
     Active Substance: OXYCODONE
     Indication: PAIN
     Dosage: AS NEEDED UP TO 5 A DAY
     Route: 048
  6. ACTEMRA [Suspect]
     Active Substance: TOCILIZUMAB
     Indication: RHEUMATOID ARTHRITIS
     Route: 058
     Dates: start: 20161026, end: 20180330
  7. CYCLOBENZAPRINE. [Concomitant]
     Active Substance: CYCLOBENZAPRINE
     Indication: MUSCLE SPASMS
     Dosage: AT BEDTIME AS NEEDED
     Route: 048
  8. RITUXAN [Suspect]
     Active Substance: RITUXIMAB
     Indication: RHEUMATOID ARTHRITIS
     Route: 065
     Dates: start: 20160628
  9. RITUXAN [Suspect]
     Active Substance: RITUXIMAB
     Indication: JUVENILE IDIOPATHIC ARTHRITIS
     Route: 042
  10. ATIVAN [Concomitant]
     Active Substance: LORAZEPAM
     Indication: ANXIETY
     Route: 048
  11. EPIPEN [Concomitant]
     Active Substance: EPINEPHRINE
  12. PROTONIX [Concomitant]
     Active Substance: PANTOPRAZOLE SODIUM
     Indication: GASTROINTESTINAL DISORDER
     Route: 048
  13. CLINDAMYCIN. [Concomitant]
     Active Substance: CLINDAMYCIN

REACTIONS (29)
  - Pyrexia [Recovered/Resolved]
  - Arthralgia [Recovered/Resolved]
  - Swelling face [Recovered/Resolved]
  - Vaccination failure [Not Recovered/Not Resolved]
  - Abdominal pain [Recovered/Resolved]
  - B-lymphocyte count decreased [Not Recovered/Not Resolved]
  - Lip swelling [Unknown]
  - Pruritus [Unknown]
  - Arthralgia [Recovering/Resolving]
  - Fatigue [Unknown]
  - Pain [Recovered/Resolved]
  - Pneumonia [Recovered/Resolved]
  - Joint swelling [Recovering/Resolving]
  - Off label use [Unknown]
  - Spinal pain [Recovering/Resolving]
  - Feeling abnormal [Unknown]
  - Lip swelling [Recovered/Resolved]
  - Upper respiratory tract infection [Recovered/Resolved]
  - Impetigo [Recovering/Resolving]
  - Bladder pain [Recovered/Resolved]
  - Fatigue [Recovered/Resolved]
  - Urticaria [Unknown]
  - Dysphagia [Recovered/Resolved]
  - Rheumatoid arthritis [Recovered/Resolved]
  - Arthritis infective [Recovered/Resolved]
  - Throat irritation [Recovering/Resolving]
  - Memory impairment [Not Recovered/Not Resolved]
  - Swelling of eyelid [Recovered/Resolved]
  - Human papilloma virus test positive [Not Recovered/Not Resolved]

NARRATIVE: CASE EVENT DATE: 201708
